FAERS Safety Report 6270560-7 (Version None)
Quarter: 2009Q3

REPORT INFORMATION
  Report Type: 
  Country: None (occurrence: None)
  Receive Date: 20090716
  Receipt Date: 20090703
  Transmission Date: 20100115
  Serious: Yes (Other)
  Sender: FDA-Public Use
  Company Number: US-PFIZER INC-2009237677

PATIENT
  Sex: Female
  Weight: 64.863 kg

DRUGS (2)
  1. CHANTIX [Suspect]
     Route: 048
     Dates: start: 20090601, end: 20090601
  2. ANTIHYPERTENSIVES [Concomitant]

REACTIONS (3)
  - DEPRESSED MOOD [None]
  - HOMICIDAL IDEATION [None]
  - SUICIDAL IDEATION [None]
